FAERS Safety Report 8236777-7 (Version None)
Quarter: 2012Q1

REPORT INFORMATION
  Report Type: 
  Country: None (occurrence: None)
  Receive Date: 20120327
  Receipt Date: 20120316
  Transmission Date: 20120608
  Serious: Yes (Hospitalization, Other)
  Sender: FDA-Public Use
  Company Number: CA-JNJFOC-20120308704

PATIENT
  Sex: Male
  Weight: 100 kg

DRUGS (9)
  1. ALTACE [Concomitant]
     Route: 065
  2. LAMICTAL [Concomitant]
     Dosage: 50-125 MG/TABLET
     Route: 065
  3. IMODIUM [Concomitant]
     Route: 065
  4. PROBIOTICS [Concomitant]
     Route: 065
  5. FOLIC ACID [Concomitant]
     Route: 065
  6. REMICADE [Suspect]
     Indication: CROHN'S DISEASE
     Dosage: START DATE :APPROXIMATELY 2010
     Route: 042
  7. BENTYLOL [Concomitant]
     Route: 065
  8. NEXIUM [Concomitant]
     Route: 065
  9. PENTASA [Concomitant]
     Route: 065

REACTIONS (3)
  - INTESTINAL OBSTRUCTION [None]
  - INGUINAL HERNIA [None]
  - ROSACEA [None]
